FAERS Safety Report 8804007 (Version 1)
Quarter: 2012Q4

REPORT INFORMATION
  Report Type: 
  Country: US (occurrence: US)
  Receive Date: 20120924
  Receipt Date: 20120924
  Transmission Date: 20130627
  Serious: No
  Sender: FDA-Public Use
  Company Number: US-PFIZER INC-2012235135

PATIENT
  Age: 65 Year
  Sex: Female
  Weight: 58.05 kg

DRUGS (5)
  1. LYRICA [Suspect]
     Indication: NEUROPATHY PERIPHERAL
     Dosage: 50 mg daily at night
     Route: 048
     Dates: start: 20120913
  2. ESTRADIOL [Concomitant]
     Indication: HORMONE REPLACEMENT THERAPY
     Dosage: 0.5 mg, daily
  3. DIVALPROEX SODIUM [Concomitant]
     Indication: MIGRAINE
     Dosage: 125 mg, 2x/day
  4. TAGAMET [Concomitant]
     Indication: SKIN PAPILLOMA
     Dosage: 400 mg, 2x/day
     Route: 048
  5. AMBIEN [Concomitant]
     Indication: SLEEP DISORDER
     Dosage: 10 mg, daily

REACTIONS (6)
  - Dizziness [Recovered/Resolved]
  - Pallor [Recovered/Resolved]
  - Vomiting [Recovered/Resolved]
  - Nausea [Recovered/Resolved]
  - Viral infection [Recovered/Resolved]
  - Presyncope [Recovered/Resolved]
